FAERS Safety Report 9163308 (Version 2)
Quarter: 2013Q1

REPORT INFORMATION
  Report Type: Spontaneous
  Country: CH (occurrence: CH)
  Receive Date: 20130314
  Receipt Date: 20130328
  Transmission Date: 20140127
  Serious: Yes (Death)
  Sender: FDA-Public Use
  Company Number: CH-BAYER-2013-031052

PATIENT
  Age: 79 Year
  Sex: Male

DRUGS (4)
  1. ASPIRIN CARDIO [Suspect]
     Dosage: 300 MG DAILY
     Route: 048
     Dates: end: 20130304
  2. XARELTO [Interacting]
     Indication: VENOUS THROMBOSIS
     Dosage: 30 MG DAILY
     Route: 048
     Dates: start: 20130201, end: 20130221
  3. XARELTO [Interacting]
     Indication: THROMBOSIS PROPHYLAXIS
     Dosage: 20 MG DAILY
     Route: 048
     Dates: start: 20130222, end: 20130304
  4. ATORVASTATIN [Concomitant]
     Dosage: 20 MG DAILY
     Dates: end: 20130304

REACTIONS (6)
  - Cerebral haemorrhage [Fatal]
  - Headache [Fatal]
  - NIH stroke scale abnormal [Fatal]
  - Potentiating drug interaction [None]
  - International normalised ratio increased [None]
  - Platelet count increased [None]
